FAERS Safety Report 9285533 (Version 1)
Quarter: 2013Q2

REPORT INFORMATION
  Report Type: Spontaneous
  Country: US (occurrence: None)
  Receive Date: 20130510
  Receipt Date: 20130510
  Transmission Date: 20140414
  Serious: No
  Sender: FDA-Public Use
  Company Number: None

PATIENT
  Age: 65 Year
  Sex: Female
  Weight: 99.79 kg

DRUGS (1)
  1. CARIMUNE [Suspect]
     Indication: BLOOD IMMUNOGLOBULIN G
     Route: 042

REACTIONS (3)
  - Tremor [None]
  - Chills [None]
  - Body temperature increased [None]
